FAERS Safety Report 24172605 (Version 1)
Quarter: 2024Q3

REPORT INFORMATION
  Report Type: Spontaneous
  Country: US (occurrence: US)
  Receive Date: 20240805
  Receipt Date: 20240805
  Transmission Date: 20241016
  Serious: No
  Sender: TAKEDA
  Company Number: US-TAKEDA-2024TUS076865

PATIENT
  Sex: Female

DRUGS (1)
  1. ENTYVIO [Suspect]
     Active Substance: VEDOLIZUMAB
     Indication: Product used for unknown indication
     Dosage: UNK UNK, Q4WEEKS
     Route: 042
     Dates: start: 2018

REACTIONS (5)
  - Lethargy [Unknown]
  - Malaise [Unknown]
  - Depressed mood [Unknown]
  - Off label use [Unknown]
  - Nausea [Unknown]
